FAERS Safety Report 6433181-9 (Version None)
Quarter: 2009Q4

REPORT INFORMATION
  Report Type: 
  Country: None (occurrence: None)
  Receive Date: 20091109
  Receipt Date: 20091029
  Transmission Date: 20100525
  Serious: Yes (Hospitalization)
  Sender: FDA-Public Use
  Company Number: PHHY2009CH46919

PATIENT
  Age: 53 Year
  Sex: Male

DRUGS (6)
  1. RASILEZ [Suspect]
     Indication: HYPERTENSION
  2. VOLTAREN [Suspect]
     Indication: GOUT
     Dosage: 1 TABLET ON ONLY ONE DAY
     Dates: start: 20090701
  3. ZYLORIC ^FRESENIUS^ [Suspect]
     Indication: GOUT
     Dosage: UNK
  4. JANUMET [Suspect]
     Indication: DIABETES MELLITUS
     Dosage: UNK
     Dates: start: 20090714, end: 20090718
  5. DIAMICRON MR [Concomitant]
     Indication: DIABETES MELLITUS
     Dosage: UNK
  6. METFORMIN HCL [Concomitant]
     Indication: DIABETES MELLITUS
     Dosage: 2000 MG/D

REACTIONS (5)
  - BLOOD CREATININE INCREASED [None]
  - DIARRHOEA [None]
  - DRUG TOXICITY [None]
  - RENAL FAILURE ACUTE [None]
  - RENAL TUBULAR NECROSIS [None]
